FAERS Safety Report 4721303-7 (Version None)
Quarter: 2005Q3

REPORT INFORMATION
  Report Type: 
  Country: None (occurrence: None)
  Receive Date: 20050721
  Receipt Date: 20040608
  Transmission Date: 20060218
  Serious: No
  Sender: FDA-Public Use
  Company Number: US-BRISTOL-MYERS SQUIBB COMPANY-12608378

PATIENT
  Age: 60 Year
  Sex: Male
  Weight: 118 kg

DRUGS (6)
  1. WARFARIN SODIUM [Suspect]
     Indication: ATRIAL FIBRILLATION
     Dosage: DOSAGE: 7.5MG AND 5MG ALTERNATING DAILY
     Route: 048
  2. DIGOXIN [Concomitant]
  3. POTASSIUM CHLORIDE [Concomitant]
  4. FLUORIGARD [Concomitant]
  5. ASPIRIN [Concomitant]
  6. ZAROXOLYN [Concomitant]

REACTIONS (1)
  - BLUE TOE SYNDROME [None]
